FAERS Safety Report 7966758-X (Version None)
Quarter: 2011Q4

REPORT INFORMATION
  Report Type: 
  Country: None (occurrence: None)
  Receive Date: 20111209
  Receipt Date: 20111205
  Transmission Date: 20120403
  Serious: No
  Sender: FDA-Public Use
  Company Number: US-BIOGENIDEC-2011BI046221

PATIENT
  Sex: Male

DRUGS (3)
  1. AVONEX [Concomitant]
     Indication: MULTIPLE SCLEROSIS
     Route: 030
     Dates: start: 20080301
  2. AVONEX [Concomitant]
     Route: 030
     Dates: start: 20070501
  3. TYSABRI [Suspect]
     Indication: MULTIPLE SCLEROSIS
     Route: 042
     Dates: start: 20070716, end: 20111202

REACTIONS (6)
  - BURNING SENSATION [None]
  - HYPOAESTHESIA [None]
  - BLINDNESS UNILATERAL [None]
  - FATIGUE [None]
  - PAIN [None]
  - INTERVERTEBRAL DISC PROTRUSION [None]
